FAERS Safety Report 24956179 (Version 1)
Quarter: 2025Q1

REPORT INFORMATION
  Report Type: Spontaneous
  Country: GB (occurrence: GB)
  Receive Date: 20250211
  Receipt Date: 20250211
  Transmission Date: 20250408
  Serious: Yes (Life-Threatening, Hospitalization, Other)
  Sender: ELI LILLY AND COMPANY
  Company Number: None

PATIENT
  Age: 19 Year
  Sex: Female

DRUGS (2)
  1. MOUNJARO [Suspect]
     Active Substance: TIRZEPATIDE
     Indication: Weight control
     Dosage: 2.5 MG, WEEKLY (1/W)
     Route: 065
  2. MOUNJARO [Suspect]
     Active Substance: TIRZEPATIDE
     Indication: Weight control
     Dosage: 10 MG, WEEKLY (1/W)
     Route: 065
     Dates: end: 20250126

REACTIONS (10)
  - Medication error [Unknown]
  - Abdominal pain [Not Recovered/Not Resolved]
  - Chest pain [Recovering/Resolving]
  - Vomiting [Recovering/Resolving]
  - Cholelithiasis [Unknown]
  - Hypophagia [Unknown]
  - Illness [Unknown]
  - Weight decreased [Unknown]
  - Burn oesophageal [Unknown]
  - Off label use [Unknown]

NARRATIVE: CASE EVENT DATE: 20250126
